FAERS Safety Report 19831555 (Version 2)
Quarter: 2021Q3

REPORT INFORMATION
  Report Type: Spontaneous
  Country: KR (occurrence: KR)
  Receive Date: 20210914
  Receipt Date: 20210916
  Transmission Date: 20211014
  Serious: Yes (Other)
  Sender: FDA-Public Use
  Company Number: KR-VIVUS, INC.-2021V1000095

PATIENT
  Age: 24 Year
  Sex: Female

DRUGS (7)
  1. ALOE FEROX,MAGNESIUM HYDROXIDE [Concomitant]
     Indication: PRODUCT USED FOR UNKNOWN INDICATION
  2. CAMELLIA SINENSIS [Concomitant]
     Active Substance: TEA LEAF
     Indication: PRODUCT USED FOR UNKNOWN INDICATION
  3. ORLISTAT. [Concomitant]
     Active Substance: ORLISTAT
  4. QSYMIA [Suspect]
     Active Substance: PHENTERMINE HYDROCHLORIDE\TOPIRAMATE
     Indication: PRODUCT USED FOR UNKNOWN INDICATION
  5. ORTHOSIPHON ARISTATUS [Concomitant]
     Indication: PRODUCT USED FOR UNKNOWN INDICATION
  6. URSODEOXYCHOLIC ACID [Concomitant]
     Active Substance: URSODIOL
     Indication: PRODUCT USED FOR UNKNOWN INDICATION
  7. SEA WATER [Concomitant]
     Active Substance: SEA WATER

REACTIONS (3)
  - Angle closure glaucoma [Unknown]
  - Illness [Unknown]
  - Nausea [Unknown]
